FAERS Safety Report 5942896-8 (Version None)
Quarter: 2008Q4

REPORT INFORMATION
  Report Type: 
  Country: None (occurrence: None)
  Receive Date: 20081106
  Receipt Date: 20081028
  Transmission Date: 20090506
  Serious: Yes (Hospitalization)
  Sender: FDA-Public Use
  Company Number: US-CELGENEUS-163-20785-08101761

PATIENT
  Sex: Male

DRUGS (2)
  1. THALOMID [Suspect]
     Indication: NEOPLASM
     Route: 048
     Dates: start: 20070920, end: 20071001
  2. THALOMID [Suspect]
     Route: 048
     Dates: start: 20081001

REACTIONS (1)
  - PATHOLOGICAL FRACTURE [None]
